FAERS Safety Report 22660300 (Version 1)
Quarter: 2023Q2

REPORT INFORMATION
  Report Type: Spontaneous
  Country: US (occurrence: None)
  Receive Date: 20230630
  Receipt Date: 20230630
  Transmission Date: 20230722
  Serious: No
  Sender: FDA-Public Use
  Company Number: None

PATIENT
  Sex: Female

DRUGS (2)
  1. SIMPONI [Suspect]
     Active Substance: GOLIMUMAB
     Indication: Colitis ulcerative
     Dosage: FREQUENCY : MONTHLY;?
     Route: 058
     Dates: start: 202303
  2. SIMPONI [Suspect]
     Active Substance: GOLIMUMAB
     Indication: Ankylosing spondylitis

REACTIONS (4)
  - Drug ineffective [None]
  - Inflammation [None]
  - Therapy interrupted [None]
  - Urinary tract infection [None]
